FAERS Safety Report 7377588-4 (Version None)
Quarter: 2011Q1

REPORT INFORMATION
  Report Type: 
  Country: None (occurrence: None)
  Receive Date: 20110328
  Receipt Date: 20110318
  Transmission Date: 20110831
  Serious: Yes (Hospitalization)
  Sender: FDA-Public Use
  Company Number: FR-US-EMD SERONO, INC.-7048354

PATIENT
  Sex: Female

DRUGS (6)
  1. SOLU-MEDROL [Suspect]
     Indication: PRODUCT USED FOR UNKNOWN INDICATION
     Route: 042
     Dates: start: 20100818, end: 20100821
  2. REBIF [Suspect]
     Route: 058
     Dates: start: 20101020, end: 20101022
  3. REBIF [Suspect]
     Route: 058
     Dates: start: 20101006, end: 20101020
  4. REBIF [Suspect]
     Indication: PRODUCT USED FOR UNKNOWN INDICATION
     Route: 058
     Dates: start: 20100920, end: 20101006
  5. SOLU-MEDROL [Suspect]
     Route: 042
     Dates: start: 20101220, end: 20101221
  6. SOLU-MEDROL [Suspect]
     Route: 042
     Dates: start: 20100916, end: 20100919

REACTIONS (1)
  - CYTOLYTIC HEPATITIS [None]
